FAERS Safety Report 24444599 (Version 2)
Quarter: 2024Q4

REPORT INFORMATION
  Report Type: Report from Study
  Country: US (occurrence: US)
  Receive Date: 20241016
  Receipt Date: 20241017
  Transmission Date: 20250115
  Serious: No
  Sender: ROCHE
  Company Number: US-ROCHE-2729381

PATIENT
  Age: 46 Year
  Sex: Female
  Weight: 124.0 kg

DRUGS (36)
  1. RITUXAN [Suspect]
     Active Substance: RITUXIMAB
     Indication: Felty^s syndrome
     Dosage: 10MG/ML, INFUSION GIVEN X 2 DOSES ONE WEEK APART EVERY 6 MONTHS, DATE OF SERVICE: 20/OCT/2022, 03/NO
     Route: 042
     Dates: start: 20200819
  2. RITUXAN [Suspect]
     Active Substance: RITUXIMAB
     Dosage: ONGOING: YES, DOSE GIVEN 2 WEEKS APART, EVERY 6 MONTHS (ANCIPATED DATE OF TREATMENT: 26/APR/2023)
     Route: 042
  3. RITUXAN [Suspect]
     Active Substance: RITUXIMAB
     Route: 042
  4. VENTOLIN HFA [Concomitant]
     Active Substance: ALBUTEROL SULFATE
     Dosage: 90MCG/ACTUATION INHALER
  5. VITAMIN B COMPLEX [Concomitant]
     Active Substance: CYANOCOBALAMIN\DEXPANTHENOL\NIACINAMIDE\PYRIDOXINE HYDROCHLORIDE\RIBOFLAVIN 5^-PHOSPHATE SODIUM\THIA
     Route: 048
  6. HYGROTON [Concomitant]
     Active Substance: CHLORTHALIDONE
     Route: 048
  7. DECADRON [Concomitant]
     Active Substance: DEXAMETHASONE
     Route: 048
  8. EPIPEN [Concomitant]
     Active Substance: EPINEPHRINE
     Dosage: 0.3/0.ML INJECTION SYRINGE
  9. LEXAPRO [Concomitant]
     Active Substance: ESCITALOPRAM OXALATE
     Route: 048
  10. PEPCID [Concomitant]
     Active Substance: FAMOTIDINE
     Route: 048
  11. FLONASE [Concomitant]
     Active Substance: FLUTICASONE PROPIONATE
     Dosage: 50MCG/ACTUATION NASAL SPRAY
  12. BREO ELLIPTA [Concomitant]
     Active Substance: FLUTICASONE FUROATE\VILANTEROL TRIFENATATE
     Dosage: 200-25 MCG/DOSE INHALER
  13. FOLVITE [Concomitant]
     Active Substance: FOLIC ACID
     Route: 048
  14. NEURONTIN [Concomitant]
     Active Substance: GABAPENTIN
     Route: 048
  15. NORCO [Concomitant]
     Active Substance: ACETAMINOPHEN\HYDROCODONE BITARTRATE
     Dosage: 5-325-MG TABLET
     Route: 048
  16. CORTEF [Concomitant]
     Active Substance: HYDROCORTISONE
     Route: 048
  17. PLAQUENIL [Concomitant]
     Active Substance: HYDROXYCHLOROQUINE SULFATE
     Route: 048
  18. ATARAX [Concomitant]
     Active Substance: HYDROXYZINE HYDROCHLORIDE
     Route: 048
  19. ADVIL [Concomitant]
     Active Substance: IBUPROFEN
     Route: 048
  20. EUTHYROX [Concomitant]
     Active Substance: LEVOTHYROXINE SODIUM
     Route: 048
  21. PRINIVIL [Concomitant]
     Active Substance: LISINOPRIL
     Route: 048
  22. NARCAN [Concomitant]
     Active Substance: NALOXONE HYDROCHLORIDE
     Dosage: 4MG/ACTUATION NASAL SPRAY
  23. FISH OIL [Concomitant]
     Active Substance: FISH OIL
     Route: 048
  24. PRILOSEC [Concomitant]
     Active Substance: OMEPRAZOLE MAGNESIUM
     Route: 048
  25. ZOFRAN [Concomitant]
     Active Substance: ONDANSETRON HYDROCHLORIDE
     Route: 048
  26. TYLENOL [Concomitant]
     Active Substance: ACETAMINOPHEN
  27. ZANTAC [Concomitant]
     Active Substance: RANITIDINE HYDROCHLORIDE
  28. ONDANSETRON [Concomitant]
     Active Substance: ONDANSETRON
  29. BENZONATATE [Concomitant]
     Active Substance: BENZONATATE
  30. FLUTICASONE PROPIONATE [Concomitant]
     Active Substance: FLUTICASONE PROPIONATE
  31. ESCITALOPRAM [Concomitant]
     Active Substance: ESCITALOPRAM OXALATE
  32. OMEPRAZOLE [Concomitant]
     Active Substance: OMEPRAZOLE
  33. ALBUTEROL SULFATE [Concomitant]
     Active Substance: ALBUTEROL SULFATE
  34. LEVOTHYROXINE [Concomitant]
     Active Substance: LEVOTHYROXINE
  35. HYDROXYZINE [Concomitant]
     Active Substance: HYDROXYZINE HYDROCHLORIDE
  36. CHLORTHALIDONE [Concomitant]
     Active Substance: CHLORTHALIDONE

REACTIONS (3)
  - Pruritus [Recovered/Resolved]
  - Incorrect drug administration rate [Unknown]
  - Off label use [Unknown]
